FAERS Safety Report 10388214 (Version 2)
Quarter: 2014Q3

REPORT INFORMATION
  Report Type: Spontaneous
  Country: US (occurrence: US)
  Receive Date: 20140815
  Receipt Date: 20140923
  Transmission Date: 20150326
  Serious: Yes (Other)
  Sender: FDA-Public Use
  Company Number: US-TEVA-501418USA

PATIENT
  Sex: Female

DRUGS (1)
  1. OMEGA-3 ACIDS [Suspect]
     Active Substance: OMEGA-3 FATTY ACIDS
     Route: 048

REACTIONS (2)
  - Gout [Unknown]
  - Abasia [Unknown]

NARRATIVE: CASE EVENT DATE: 20140622
